FAERS Safety Report 24180805 (Version 2)
Quarter: 2024Q3

REPORT INFORMATION
  Report Type: Report from Study
  Country: IT (occurrence: IT)
  Receive Date: 20240806
  Receipt Date: 20240809
  Transmission Date: 20241017
  Serious: Yes (Death, Life-Threatening, Hospitalization, Other)
  Sender: GILEAD
  Company Number: None

PATIENT
  Age: 53 Year
  Sex: Male
  Weight: 68 kg

DRUGS (2)
  1. AXICABTAGENE CILOLEUCEL [Suspect]
     Active Substance: AXICABTAGENE CILOLEUCEL
     Indication: Diffuse large B-cell lymphoma stage IV
     Dosage: UNK
     Route: 042
     Dates: start: 20240701, end: 20240701
  2. CYTARABINE;DEXAMETHASONE;OXALIPLATIN;RITUXIMAB [Concomitant]
     Indication: Diffuse large B-cell lymphoma

REACTIONS (2)
  - Immune effector cell-associated neurotoxicity syndrome [Unknown]
  - Septic shock [Fatal]

NARRATIVE: CASE EVENT DATE: 20240708
